FAERS Safety Report 9683895 (Version 1)
Quarter: 2013Q4

REPORT INFORMATION
  Report Type: Spontaneous
  Country: US (occurrence: US)
  Receive Date: 20131112
  Receipt Date: 20131112
  Transmission Date: 20140711
  Serious: No
  Sender: FDA-Public Use
  Company Number: US-MALLINCKRODT-T201304262

PATIENT
  Age: 49 Year
  Sex: Male
  Weight: 49.89 kg

DRUGS (5)
  1. FENTANYL TRANSDERMAL SYSTEM [Suspect]
     Indication: PAIN
     Dosage: 25 UG/HR, Q 72 HRS
     Route: 062
     Dates: start: 201305
  2. XANAX [Concomitant]
     Indication: PRODUCT USED FOR UNKNOWN INDICATION
     Dosage: UNK
     Route: 048
  3. STOOL SOFTENER [Concomitant]
     Dosage: UNK
     Route: 048
  4. OXYCODONE [Concomitant]
     Dosage: UNK
     Route: 048
  5. CHEMOTHERAPEUTICS [Concomitant]
     Dosage: UNK

REACTIONS (1)
  - Gastritis [Not Recovered/Not Resolved]
